FAERS Safety Report 18652073 (Version 1)
Quarter: 2020Q4

REPORT INFORMATION
  Report Type: Spontaneous
  Country: US (occurrence: US)
  Receive Date: 20201223
  Receipt Date: 20201223
  Transmission Date: 20210114
  Serious: Yes (Hospitalization, Other)
  Sender: FDA-Public Use
  Company Number: US-LUPIN PHARMACEUTICALS INC.-2020-10769

PATIENT
  Age: 16 Year
  Sex: Female
  Weight: 64 kg

DRUGS (24)
  1. METHADONE [Suspect]
     Active Substance: METHADONE HYDROCHLORIDE
     Dosage: 10 MILLIGRAM, BID (10MG IN THE MORNING AND EVENING)
     Route: 065
  2. CITALOPRAM [Concomitant]
     Active Substance: CITALOPRAM HYDROBROMIDE
     Indication: DEPRESSED MOOD
  3. HYDROMORPHONE [Suspect]
     Active Substance: HYDROMORPHONE
     Dosage: 125 MICROGRAM (INCREASED TO 125UG DEMAND DOSE) (ROUTE: CONTINUOUS INFUSION)
  4. BUPRENORPHINE/NALOXONE [Concomitant]
     Active Substance: BUPRENORPHINE\NALOXONE
     Indication: CANCER PAIN
     Dosage: UNK (BUPRENORPHINE/NALOXONE: 2MG/ 0.5MG THRICE DAILY, WITH ADDITIONAL FILMS AS REQUIRED)
     Route: 065
  5. GABAPENTIN. [Concomitant]
     Active Substance: GABAPENTIN
     Dosage: 900 MILLIGRAM, QD
     Route: 065
  6. CITALOPRAM [Concomitant]
     Active Substance: CITALOPRAM HYDROBROMIDE
     Indication: ANXIETY
     Dosage: UNK
     Route: 065
  7. LORAZEPAM. [Concomitant]
     Active Substance: LORAZEPAM
     Indication: DEPRESSED MOOD
  8. HYDROMORPHONE [Suspect]
     Active Substance: HYDROMORPHONE
     Indication: CANCER PAIN
     Dosage: 25 MICROGRAM (25 UG/H) (ROUTE: CONTINUOUS INFUSION)
  9. HYDROMORPHONE [Suspect]
     Active Substance: HYDROMORPHONE
     Dosage: 75 MICROGRAM (INCREASED TO 75 UG/H INFUSION) (ROUTE: CONTINUOUS INFUSION)
  10. METHADONE [Suspect]
     Active Substance: METHADONE HYDROCHLORIDE
     Indication: CANCER PAIN
     Dosage: 2.5 MILLIGRAM, TID
     Route: 065
  11. BUPRENORPHINE/NALOXONE [Concomitant]
     Active Substance: BUPRENORPHINE\NALOXONE
     Dosage: UNK (WEANED OFF BY CUTTING THE FILM IN HALF AND ADMINISTERING 0.5 FILM (OFF-LABEL USE) CONTAINING BU
     Route: 060
  12. DEXAMETHASONE. [Concomitant]
     Active Substance: DEXAMETHASONE
     Indication: CANCER PAIN
     Dosage: 6 MILLIGRAM
     Route: 065
  13. GABAPENTIN. [Concomitant]
     Active Substance: GABAPENTIN
     Indication: CANCER PAIN
     Dosage: 600 MILLIGRAM, TID
     Route: 065
  14. OXYCODONE [Suspect]
     Active Substance: OXYCODONE
     Indication: CANCER PAIN
     Dosage: 5 MILLIGRAM, PRN (AS NEEDED (BEFORE ADMISSION ))
     Route: 065
  15. GABAPENTIN. [Concomitant]
     Active Substance: GABAPENTIN
     Dosage: 600 MILLIGRAM, QD (WITH ADDITIONAL 900MG AT NIGHT)
     Route: 065
  16. TRAZODONE [Concomitant]
     Active Substance: TRAZODONE HYDROCHLORIDE
     Indication: ANXIETY
     Dosage: UNK
     Route: 065
  17. LORAZEPAM. [Concomitant]
     Active Substance: LORAZEPAM
     Indication: ANXIETY
     Dosage: UNK
     Route: 065
  18. HYDROMORPHONE [Suspect]
     Active Substance: HYDROMORPHONE
     Dosage: 200 MICROGRAM (INCREASED TO 200UG DEMAND DOSE) (ROUTE: CONTINUOUS INFUSION)
  19. BUPRENORPHINE/NALOXONE [Concomitant]
     Active Substance: BUPRENORPHINE\NALOXONE
     Dosage: UNK (WEANED OFF BUPRENORPHINE/NALOXONE: 2MG/ 0.5MG TO TWICE DAILY)
     Route: 060
  20. ACETAMINOPHEN. [Concomitant]
     Active Substance: ACETAMINOPHEN
     Indication: CANCER PAIN
     Dosage: UNK
     Route: 065
  21. HYDROMORPHONE [Suspect]
     Active Substance: HYDROMORPHONE
     Dosage: 100 MICROGRAM (ADDITIONAL 100UG ON DEMAND) (ROUTE: CONTINUOUS INFUSION)
  22. METHADONE [Suspect]
     Active Substance: METHADONE HYDROCHLORIDE
     Dosage: 5 MILLIGRAM, QD (5MG AT MID-DAY)
     Route: 065
  23. TRAZODONE [Concomitant]
     Active Substance: TRAZODONE HYDROCHLORIDE
     Indication: DEPRESSED MOOD
  24. OXYCODONE [Suspect]
     Active Substance: OXYCODONE
     Dosage: 7.5 MILLIGRAM, PRN (AS NEEDED (AFTER ADMISSION))
     Route: 065

REACTIONS (2)
  - Dysphagia [Recovering/Resolving]
  - Drug ineffective [Unknown]
